FAERS Safety Report 13377027 (Version 1)
Quarter: 2017Q1

REPORT INFORMATION
  Report Type: Spontaneous
  Country: None (occurrence: US)
  Receive Date: 20170328
  Receipt Date: 20170328
  Transmission Date: 20170429
  Serious: No
  Sender: FDA-Public Use
  Company Number: None

PATIENT
  Sex: Male
  Weight: 78.5 kg

DRUGS (19)
  1. VERSED [Concomitant]
     Active Substance: MIDAZOLAM HYDROCHLORIDE
  2. EPCLUSA [Suspect]
     Active Substance: SOFOSBUVIR\VELPATASVIR
     Indication: HEPATITIS C
     Dosage: 400MG/100MG QD ORAL
     Route: 048
     Dates: start: 20161223, end: 20170316
  3. DIGOXIN. [Concomitant]
     Active Substance: DIGOXIN
  4. ALDACTONE [Concomitant]
     Active Substance: SPIRONOLACTONE
  5. DEMEROL [Concomitant]
     Active Substance: MEPERIDINE HYDROCHLORIDE
  6. TYLENOL [Concomitant]
     Active Substance: ACETAMINOPHEN
  7. ZINC. [Concomitant]
     Active Substance: ZINC
  8. PROMETHAZINE [Concomitant]
     Active Substance: PROMETHAZINE\PROMETHAZINE HYDROCHLORIDE
  9. CIPRO [Concomitant]
     Active Substance: CIPROFLOXACIN HYDROCHLORIDE
  10. LEVOFLOXACIN. [Concomitant]
     Active Substance: LEVOFLOXACIN
  11. VITAMIN D [Concomitant]
     Active Substance: CHOLECALCIFEROL
  12. RIFAXIMIN [Concomitant]
     Active Substance: RIFAXIMIN
  13. ELIQUIS [Concomitant]
     Active Substance: APIXABAN
  14. LACTULOSE. [Concomitant]
     Active Substance: LACTULOSE
  15. DILAUDID [Concomitant]
     Active Substance: HYDROMORPHONE HYDROCHLORIDE
  16. LASIX [Concomitant]
     Active Substance: FUROSEMIDE
  17. HYDROMORPHONE [Concomitant]
     Active Substance: HYDROMORPHONE
  18. OMEPRAZOLE. [Concomitant]
     Active Substance: OMEPRAZOLE
  19. DILTIAZEM. [Concomitant]
     Active Substance: DILTIAZEM

REACTIONS (4)
  - Abdominal pain [None]
  - Abdominal tenderness [None]
  - Ascites [None]
  - Flatulence [None]

NARRATIVE: CASE EVENT DATE: 20170124
